FAERS Safety Report 11977848 (Version 2)
Quarter: 2016Q3

REPORT INFORMATION
  Report Type: Spontaneous
  Country: DE (occurrence: DE)
  Receive Date: 20160129
  Receipt Date: 20160825
  Transmission Date: 20161109
  Serious: Yes (Death, Other)
  Sender: FDA-Public Use
  Company Number: DE-BRISTOL-MYERS SQUIBB COMPANY-BMS-2005-000067

PATIENT

DRUGS (1)
  1. ABILIFY [Suspect]
     Active Substance: ARIPIPRAZOLE
     Indication: PRODUCT USED FOR UNKNOWN INDICATION
     Dosage: 15 MG, UNK
     Route: 064
     Dates: start: 20040817, end: 20050616

REACTIONS (2)
  - Foetal exposure during pregnancy [Recovered/Resolved]
  - Foetal growth restriction [Fatal]

NARRATIVE: CASE EVENT DATE: 2005
